FAERS Safety Report 23466633 (Version 1)
Quarter: 2024Q1

REPORT INFORMATION
  Report Type: Spontaneous
  Country: US (occurrence: US)
  Receive Date: 20240201
  Receipt Date: 20240201
  Transmission Date: 20240410
  Serious: Yes (Other)
  Sender: FDA-Public Use
  Company Number: US-MYLANLABS-2024M1010006

PATIENT
  Age: 56 Year
  Sex: Male

DRUGS (2)
  1. POSACONAZOLE [Suspect]
     Active Substance: POSACONAZOLE
     Indication: Arthritis bacterial
     Dosage: UNK
     Route: 065
  2. POSACONAZOLE [Suspect]
     Active Substance: POSACONAZOLE
     Indication: Coccidioidomycosis

REACTIONS (2)
  - Pseudoaldosteronism [Recovering/Resolving]
  - Glucocorticoid deficiency [Not Recovered/Not Resolved]
